FAERS Safety Report 4626501-9 (Version None)
Quarter: 2005Q2

REPORT INFORMATION
  Report Type: 
  Country: None (occurrence: None)
  Receive Date: 20050404
  Receipt Date: 20041202
  Transmission Date: 20051028
  Serious: Yes (Life-Threatening, Hospitalization)
  Sender: FDA-Public Use
  Company Number: DE-MERCK-0412DEU00035

PATIENT
  Age: 80 Year
  Sex: Male
  Weight: 90 kg

DRUGS (2)
  1. VIOXX [Suspect]
     Indication: OSTEOARTHRITIS
     Route: 048
     Dates: start: 19991130
  2. EPROSARTAN [Concomitant]
     Route: 048

REACTIONS (5)
  - ATRIOVENTRICULAR BLOCK COMPLETE [None]
  - BLOOD CREATININE INCREASED [None]
  - BRADYARRHYTHMIA [None]
  - HYPERTENSION [None]
  - MYOCARDIAL INFARCTION [None]
